FAERS Safety Report 11596568 (Version 1)
Quarter: 2015Q4

REPORT INFORMATION
  Report Type: Spontaneous
  Country: US (occurrence: None)
  Receive Date: 20151005
  Receipt Date: 20151005
  Transmission Date: 20160304
  Serious: Yes (Disabling, Other)
  Sender: FDA-Public Use
  Company Number: None

PATIENT
  Age: 58 Year
  Sex: Female
  Weight: 61.24 kg

DRUGS (9)
  1. XGEVA [Suspect]
     Active Substance: DENOSUMAB
     Indication: BREAST CANCER
     Dates: start: 20130607, end: 20150217
  2. CALCIUM [Concomitant]
     Active Substance: CALCIUM
  3. VITAMIN D3 [Concomitant]
     Active Substance: CHOLECALCIFEROL
  4. XELODA [Concomitant]
     Active Substance: CAPECITABINE
  5. XGEVA [Suspect]
     Active Substance: DENOSUMAB
     Indication: PROPHYLAXIS
     Dates: start: 20130607, end: 20150217
  6. ATENOLOL. [Concomitant]
     Active Substance: ATENOLOL
  7. FASLODEX [Concomitant]
     Active Substance: FULVESTRANT
  8. SYNTHROID [Concomitant]
     Active Substance: LEVOTHYROXINE SODIUM
  9. MULTIVITAMIN [Concomitant]
     Active Substance: VITAMINS

REACTIONS (4)
  - Eating disorder [None]
  - Toothache [None]
  - Osteonecrosis [None]
  - Tooth loss [None]

NARRATIVE: CASE EVENT DATE: 201408
